FAERS Safety Report 14296395 (Version 2)
Quarter: 2018Q1

REPORT INFORMATION
  Report Type: Report from Study
  Country: CA (occurrence: CA)
  Receive Date: 20171218
  Receipt Date: 20180306
  Transmission Date: 20180509
  Serious: Yes (Other)
  Sender: FDA-Public Use
  Company Number: CA-AMGEN-CANSL2017185335

PATIENT
  Age: 58 Year
  Sex: Female

DRUGS (4)
  1. ENBREL [Suspect]
     Active Substance: ETANERCEPT
     Indication: PSORIATIC ARTHROPATHY
     Dosage: 50 MG, QWK
     Route: 065
     Dates: start: 201609, end: 201705
  2. NAPROXEN. [Concomitant]
     Active Substance: NAPROXEN
     Dosage: 220-500 MG BID PRN FEW TIMES PER WEEK.
     Route: 065
  3. ENBREL [Suspect]
     Active Substance: ETANERCEPT
     Dosage: 50 MG, UNK
     Route: 065
  4. SECUKINUMAB. [Concomitant]
     Active Substance: SECUKINUMAB
     Indication: PSORIATIC ARTHROPATHY
     Dosage: UNK
     Route: 065

REACTIONS (8)
  - Psoriasis [Not Recovered/Not Resolved]
  - Liver function test abnormal [Unknown]
  - Renal impairment [Unknown]
  - Drug ineffective [Unknown]
  - Dactylitis [Not Recovered/Not Resolved]
  - Tenderness [Unknown]
  - Joint swelling [Not Recovered/Not Resolved]
  - C-reactive protein [Unknown]
